FAERS Safety Report 18588321 (Version 1)
Quarter: 2020Q4

REPORT INFORMATION
  Report Type: Spontaneous
  Country: US (occurrence: US)
  Receive Date: 20201207
  Receipt Date: 20201207
  Transmission Date: 20210114
  Serious: No
  Sender: FDA-Public Use
  Company Number: US-JUBILANT CADISTA PHARMACEUTICALS-2020JUB00110

PATIENT
  Age: 83 Year
  Sex: Female

DRUGS (1)
  1. METHYLPREDNISOLONE TABLETS USP 4 MG [Suspect]
     Active Substance: METHYLPREDNISOLONE
     Dosage: 12 MG
     Dates: start: 20200321

REACTIONS (3)
  - Chest discomfort [Not Recovered/Not Resolved]
  - Malaise [Not Recovered/Not Resolved]
  - Dizziness [Not Recovered/Not Resolved]

NARRATIVE: CASE EVENT DATE: 20200321
